FAERS Safety Report 15288501 (Version 2)
Quarter: 2018Q4

REPORT INFORMATION
  Report Type: Spontaneous
  Country: US (occurrence: US)
  Receive Date: 20180817
  Receipt Date: 20181004
  Transmission Date: 20190204
  Serious: Yes (Other)
  Sender: FDA-Public Use
  Company Number: US-MELINTA-US-MLNT-18-00264

PATIENT
  Age: 43 Year
  Sex: Male
  Weight: 93.44 kg

DRUGS (2)
  1. ORBACTIV [Suspect]
     Active Substance: ORITAVANCIN
     Indication: CELLULITIS
     Route: 041
     Dates: start: 20180613, end: 20180613
  2. ORBACTIV [Suspect]
     Active Substance: ORITAVANCIN
     Indication: OSTEOMYELITIS
     Dosage: 5.83 ML/MIN; 350 ML/HR
     Route: 041
     Dates: start: 20180625, end: 20180625

REACTIONS (11)
  - Nausea [Recovered/Resolved]
  - Back pain [Recovered/Resolved]
  - Hypersensitivity [Recovered/Resolved]
  - Neck pain [Recovered/Resolved]
  - Off label use [Recovered/Resolved]
  - Tremor [Recovered/Resolved]
  - Hypertension [Recovered/Resolved]
  - Abdominal pain [Recovered/Resolved]
  - Tachycardia [Recovered/Resolved]
  - Chills [Recovered/Resolved]
  - Dyspnoea [Recovered/Resolved]

NARRATIVE: CASE EVENT DATE: 20180625
